FAERS Safety Report 23430753 (Version 1)
Quarter: 2024Q1

REPORT INFORMATION
  Report Type: Report from Study
  Country: ZA (occurrence: ZA)
  Receive Date: 20240123
  Receipt Date: 20240123
  Transmission Date: 20240410
  Serious: Yes (Hospitalization, Other)
  Sender: FDA-Public Use
  Company Number: ZA-ABBVIE-5594547

PATIENT
  Age: 53 Year
  Sex: Female

DRUGS (1)
  1. HUMIRA [Suspect]
     Active Substance: ADALIMUMAB
     Indication: Rheumatoid arthritis
     Route: 058
     Dates: start: 20230712

REACTIONS (4)
  - Hernia [Not Recovered/Not Resolved]
  - Abdominal operation [Recovering/Resolving]
  - Cardiac failure [Not Recovered/Not Resolved]
  - Wound [Unknown]
